FAERS Safety Report 11642206 (Version 2)
Quarter: 2015Q4

REPORT INFORMATION
  Report Type: Spontaneous
  Country: US (occurrence: US)
  Receive Date: 20151019
  Receipt Date: 20151130
  Transmission Date: 20160304
  Serious: No
  Sender: FDA-Public Use
  Company Number: US-PFIZER INC-2015347335

PATIENT

DRUGS (1)
  1. NEUMEGA [Suspect]
     Active Substance: OPRELVEKIN
     Dosage: 5 MG, UNK

REACTIONS (1)
  - Drug ineffective [Unknown]
